FAERS Safety Report 13616097 (Version 1)
Quarter: 2017Q2

REPORT INFORMATION
  Report Type: Spontaneous
  Country: US (occurrence: US)
  Receive Date: 20170606
  Receipt Date: 20170606
  Transmission Date: 20170830
  Serious: No
  Sender: FDA-Public Use
  Company Number: US-GLENMARK PHARMACEUTICALS-2017GMK026694

PATIENT

DRUGS (2)
  1. NORETHINDRONE. [Suspect]
     Active Substance: NORETHINDRONE
     Indication: ENDOMETRIOSIS
     Dosage: 3.75 MG, UNK
     Route: 048
     Dates: start: 201701
  2. LEUPROLIDE ACETATE. [Suspect]
     Active Substance: LEUPROLIDE ACETATE
     Indication: ENDOMETRIOSIS
     Dosage: 3.75 MG, UNK
     Route: 048
     Dates: start: 201701

REACTIONS (2)
  - Metrorrhagia [Not Recovered/Not Resolved]
  - Menstrual disorder [Unknown]

NARRATIVE: CASE EVENT DATE: 2017
